FAERS Safety Report 9259284 (Version 2)
Quarter: 2013Q2

REPORT INFORMATION
  Report Type: Spontaneous
  Country: US (occurrence: US)
  Receive Date: 20130426
  Receipt Date: 20130528
  Transmission Date: 20140414
  Serious: Yes (Other)
  Sender: FDA-Public Use
  Company Number: US-MERCK-1304USA014888

PATIENT
  Age: 60 Year
  Sex: Female

DRUGS (1)
  1. JANUVIA [Suspect]
     Dosage: 1 TABLET ONCE DAILY
     Route: 048
     Dates: start: 20130211, end: 201303

REACTIONS (3)
  - Cholecystectomy [Not Recovered/Not Resolved]
  - Lipase increased [Not Recovered/Not Resolved]
  - Cholelithiasis [Not Recovered/Not Resolved]
